FAERS Safety Report 8962660 (Version 2)
Quarter: 2012Q4

REPORT INFORMATION
  Report Type: Report from Study
  Country: US (occurrence: US)
  Receive Date: 20121213
  Receipt Date: 20121213
  Transmission Date: 20130627
  Serious: Yes (Hospitalization)
  Sender: FDA-Public Use
  Company Number: US-JNJFOC-20121203802

PATIENT
  Age: 41 Year
  Sex: Female
  Weight: 77.11 kg

DRUGS (3)
  1. REMICADE [Suspect]
     Indication: PSORIASIS
     Route: 042
     Dates: start: 201009
  2. PREMEDICATION [Concomitant]
     Indication: PREMEDICATION
     Dosage: peri-adminstration medications
  3. METHOTREXATE [Concomitant]

REACTIONS (1)
  - Cholecystitis [Recovered/Resolved]
